FAERS Safety Report 6914116-9 (Version None)
Quarter: 2010Q3

REPORT INFORMATION
  Report Type: 
  Country: None (occurrence: None)
  Receive Date: 20100809
  Receipt Date: 20100804
  Transmission Date: 20110219
  Serious: Yes (Other)
  Sender: FDA-Public Use
  Company Number: CA-BRISTOL-MYERS SQUIBB COMPANY-15225253

PATIENT
  Sex: Female

DRUGS (3)
  1. ONGLYZA [Suspect]
  2. METFORMIN HCL [Suspect]
  3. GLYBURIDE [Suspect]

REACTIONS (2)
  - BENIGN NEOPLASM OF THYROID GLAND [None]
  - LICHEN PLANUS [None]
